FAERS Safety Report 19828221 (Version 1)
Quarter: 2021Q3

REPORT INFORMATION
  Report Type: Report from Study
  Country: GB (occurrence: GB)
  Receive Date: 20210914
  Receipt Date: 20210914
  Transmission Date: 20211014
  Serious: Yes (Other)
  Sender: FDA-Public Use
  Company Number: GB-ACCORD-231262

PATIENT
  Age: 56 Year
  Sex: Female

DRUGS (15)
  1. LOPERAMIDE [Concomitant]
     Active Substance: LOPERAMIDE
     Indication: PROPHYLAXIS AGAINST DIARRHOEA
     Route: 048
     Dates: start: 20160818
  2. AMITRIPTYLINE [Concomitant]
     Active Substance: AMITRIPTYLINE
     Indication: PAIN
     Route: 048
     Dates: start: 201704, end: 20170405
  3. AZTREONAM. [Concomitant]
     Active Substance: AZTREONAM
     Indication: INFECTION
     Route: 065
     Dates: start: 201803, end: 201803
  4. LANSOPRAZOLE. [Concomitant]
     Active Substance: LANSOPRAZOLE
     Route: 048
     Dates: start: 2016
  5. DEXAMETHASONE. [Concomitant]
     Active Substance: DEXAMETHASONE
     Indication: INFUSION RELATED REACTION
     Route: 065
     Dates: start: 20160818
  6. EXEMESTANE. [Concomitant]
     Active Substance: EXEMESTANE
     Indication: BREAST CANCER
     Route: 048
     Dates: start: 20170116
  7. PARACETAMOL [Concomitant]
     Active Substance: ACETAMINOPHEN
     Indication: MYALGIA
     Route: 048
     Dates: start: 201901
  8. ADCAL?D3 [Concomitant]
     Active Substance: CALCIUM CARBONATE\CHOLECALCIFEROL
     Indication: MINERAL SUPPLEMENTATION
     Dosage: 1 TABLET
     Route: 048
     Dates: start: 20161117
  9. TRASTUZUMAB. [Suspect]
     Active Substance: TRASTUZUMAB
     Indication: BREAST CANCER METASTATIC
     Route: 058
     Dates: start: 20160818
  10. ZOLEDRONIC ACID [Concomitant]
     Active Substance: ZOLEDRONIC ACID
     Route: 042
     Dates: start: 20170907
  11. CODEINE [Concomitant]
     Active Substance: CODEINE
     Indication: PAIN
     Route: 048
     Dates: start: 20170302
  12. DOMPERIDONE [Concomitant]
     Active Substance: DOMPERIDONE
     Indication: PROPHYLAXIS OF NAUSEA AND VOMITING
     Route: 065
     Dates: start: 20160818
  13. DOCETAXEL. [Suspect]
     Active Substance: DOCETAXEL
     Indication: BREAST CANCER METASTATIC
     Dosage: 150 MG EVERY 3 WEEKS, CONCENTRATE FOR SOLUTION FOR INFUSION
     Route: 042
     Dates: start: 20160818, end: 20160818
  14. PERTUZUMAB. [Suspect]
     Active Substance: PERTUZUMAB
     Indication: BREAST CANCER METASTATIC
     Dosage: LOADING DOSE
     Route: 042
     Dates: start: 20160818, end: 20160818
  15. DALTEPARIN [Concomitant]
     Active Substance: DALTEPARIN
     Dosage: 12500 UNIT
     Route: 065
     Dates: start: 201708, end: 201708

REACTIONS (10)
  - Chills [Recovered/Resolved]
  - Radiation associated pain [Unknown]
  - Nasopharyngitis [Recovered/Resolved]
  - Viral infection [Recovered/Resolved]
  - Anaemia [Recovered/Resolved]
  - Nausea [Recovered/Resolved]
  - Neurotoxicity [Recovered/Resolved]
  - Cough [Recovered/Resolved]
  - Arthralgia [Recovered/Resolved]
  - Procedural pain [Recovered/Resolved]

NARRATIVE: CASE EVENT DATE: 20161028
